APPROVED DRUG PRODUCT: EDETATE CALCIUM DISODIUM
Active Ingredient: EDETATE CALCIUM DISODIUM
Strength: 200MG/ML
Dosage Form/Route: INJECTABLE;INJECTION
Application: A216435 | Product #001
Applicant: CASPER PHARMA LLC
Approved: May 3, 2023 | RLD: No | RS: Yes | Type: RX